FAERS Safety Report 14145156 (Version 1)
Quarter: 2017Q4

REPORT INFORMATION
  Report Type: Spontaneous
  Country: US (occurrence: US)
  Receive Date: 20171031
  Receipt Date: 20171031
  Transmission Date: 20180321
  Serious: Yes (Other)
  Sender: FDA-Public Use
  Company Number: US-HERITAGE PHARMACEUTICALS-2017HTG00323

PATIENT
  Age: 39 Year
  Sex: Female

DRUGS (4)
  1. PANTOPRAZOLE [Concomitant]
     Active Substance: PANTOPRAZOLE
     Route: 065
  2. METRONIDAZOLE. [Concomitant]
     Active Substance: METRONIDAZOLE
     Route: 065
  3. DOXYCYCLINE. [Suspect]
     Active Substance: DOXYCYCLINE
     Indication: HELICOBACTER INFECTION
     Dosage: 100 MG, 2X/DAY
     Route: 065
  4. LEVONORGESTREL-ETHINYL ESTRADIOL [Concomitant]
     Route: 065

REACTIONS (2)
  - Erosive duodenitis [Recovered/Resolved]
  - Gastric ulcer [Recovered/Resolved]
